FAERS Safety Report 20687029 (Version 2)
Quarter: 2022Q3

REPORT INFORMATION
  Report Type: Report from Study
  Country: IT (occurrence: IT)
  Receive Date: 20220407
  Receipt Date: 20220902
  Transmission Date: 20221027
  Serious: Yes (Hospitalization)
  Sender: FDA-Public Use
  Company Number: IT-UCBSA-2022018853

PATIENT
  Sex: Female

DRUGS (2)
  1. ROTIGOTINE [Suspect]
     Active Substance: ROTIGOTINE
     Indication: Product used for unknown indication
     Dosage: 2 MILLIGRAM, ONCE DAILY (QD)
  2. ROTIGOTINE [Suspect]
     Active Substance: ROTIGOTINE
     Dosage: 8 MG AND 2 MG DOSAGE

REACTIONS (8)
  - Myocardial infarction [Unknown]
  - Cardiac failure [Unknown]
  - Malaise [Unknown]
  - Phlebitis [Unknown]
  - Blister [Unknown]
  - Pain [Unknown]
  - Bedridden [Unknown]
  - Disorientation [Unknown]

NARRATIVE: CASE EVENT DATE: 20220323
